FAERS Safety Report 4958047-2 (Version None)
Quarter: 2006Q1

REPORT INFORMATION
  Report Type: 
  Country: None (occurrence: None)
  Receive Date: 20060330
  Receipt Date: 20060301
  Transmission Date: 20060701
  Serious: Yes (Death, Hospitalization, Disabling, Other)
  Sender: FDA-Public Use
  Company Number: GB-MERCK-0603GBR00011

PATIENT
  Age: 72 Year
  Sex: Male
  Weight: 67 kg

DRUGS (12)
  1. ZOCOR [Suspect]
     Route: 048
     Dates: start: 20050907, end: 20060203
  2. OMEPRAZOLE [Concomitant]
     Route: 065
  3. GLUCOSAMINE [Concomitant]
     Route: 065
  4. CHONDROITIN [Concomitant]
     Route: 065
  5. METOCLOPRAMIDE [Concomitant]
     Route: 065
  6. FERROUS SULFATE [Concomitant]
     Route: 065
  7. ACETAMINOPHEN AND PROPOXYPHENE HYDROCHLORIDE [Concomitant]
     Indication: PAIN
     Route: 065
  8. LANOLIN ALCOHOLS AND MINERAL OIL [Concomitant]
     Route: 065
  9. CROMOLYN SODIUM [Concomitant]
     Route: 047
  10. POLIDOCANOL AND SOYBEAN OIL [Concomitant]
     Route: 065
  11. LORATADINE [Concomitant]
     Route: 065
  12. POTASSIUM BICARBONATE AND SODIUM ALGINATE [Concomitant]
     Route: 048

REACTIONS (6)
  - AMNESIA [None]
  - COGNITIVE DETERIORATION [None]
  - DEATH [None]
  - DEPRESSED LEVEL OF CONSCIOUSNESS [None]
  - FATIGUE [None]
  - HYPERSOMNIA [None]
